FAERS Safety Report 24698370 (Version 1)
Quarter: 2024Q4

REPORT INFORMATION
  Report Type: Spontaneous
  Country: US (occurrence: US)
  Receive Date: 20241204
  Receipt Date: 20241204
  Transmission Date: 20250115
  Serious: No
  Sender: PACIRA
  Company Number: US-ORG100016242-2024000365

PATIENT
  Age: 72 Year
  Sex: Female

DRUGS (3)
  1. ZILRETTA [Suspect]
     Active Substance: TRIAMCINOLONE ACETONIDE
     Indication: Arthralgia
     Dosage: FIRST TWO IN HER LEFT KNEE, AND THE THIRD IN HER LEFT HIP
     Route: 050
     Dates: start: 202402, end: 202402
  2. ZILRETTA [Suspect]
     Active Substance: TRIAMCINOLONE ACETONIDE
     Indication: Arthralgia
     Dosage: FIRST TWO IN HER LEFT KNEE, AND THE THIRD IN HER LEFT HIP
     Route: 050
     Dates: start: 20240326, end: 20240326
  3. PREDNISONE [Concomitant]
     Active Substance: PREDNISONE
     Indication: Arthralgia
     Dosage: NOT PROVIDED

REACTIONS (4)
  - Recalled product administered [Unknown]
  - Mobility decreased [Not Recovered/Not Resolved]
  - Off label use [Unknown]
  - Arthralgia [Not Recovered/Not Resolved]

NARRATIVE: CASE EVENT DATE: 20240201
